FAERS Safety Report 9232331 (Version 2)
Quarter: 2013Q2

REPORT INFORMATION
  Report Type: Spontaneous
  Country: US (occurrence: US)
  Receive Date: 20130416
  Receipt Date: 20130509
  Transmission Date: 20140414
  Serious: No
  Sender: FDA-Public Use
  Company Number: US-009507513-1304USA005165

PATIENT
  Age: 50 Year
  Sex: Female
  Weight: 77.98 kg

DRUGS (5)
  1. SAPHRIS [Suspect]
     Indication: SCHIZOPHRENIA
     Dosage: UNK
     Route: 060
     Dates: start: 20120814
  2. CLORAZEPAM [Concomitant]
     Dosage: UNK
     Route: 048
  3. BUPROPION HYDROCHLORIDE [Concomitant]
     Dosage: 150 UNK, UNK
     Route: 048
  4. DIVALPROEX SODIUM [Concomitant]
     Dosage: UNK
     Route: 048
  5. BENZTROPINE MESYLATE [Concomitant]
     Dosage: UNK
     Route: 048

REACTIONS (2)
  - Lip blister [Recovered/Resolved]
  - Cheilitis [Recovered/Resolved]
